FAERS Safety Report 24170078 (Version 3)
Quarter: 2025Q4

REPORT INFORMATION
  Report Type: Report from Study
  Country: US (occurrence: US)
  Receive Date: 20240803
  Receipt Date: 20251222
  Transmission Date: 20260118
  Serious: Yes (Other)
  Sender: AMNEAL
  Company Number: US-AMNEAL PHARMACEUTICALS-2024-AMRX-00762

PATIENT

DRUGS (3)
  1. OPICAPONE [Suspect]
     Active Substance: OPICAPONE
     Indication: Product used for unknown indication
     Dosage: 50 MILLIGRAM, DAILY
     Route: 048
  2. CREXONT [Suspect]
     Active Substance: CARBIDOPA\LEVODOPA
     Indication: Parkinson^s disease
     Dosage: (87.5/350MG) 2 CAPSULES, 3 /DAY
     Route: 048
  3. CREXONT [Suspect]
     Active Substance: CARBIDOPA\LEVODOPA
     Dosage: (87.5/350MG) 2 CAPSULES, 3 /DAY AND (35/140MG) 1 TABLET, 3 /DAY
     Route: 048

REACTIONS (3)
  - Dystonia [Unknown]
  - Deep brain stimulation [Recovered/Resolved]
  - On and off phenomenon [Unknown]

NARRATIVE: CASE EVENT DATE: 20240228
